FAERS Safety Report 17411605 (Version 1)
Quarter: 2020Q1

REPORT INFORMATION
  Report Type: Spontaneous
  Country: DK (occurrence: DK)
  Receive Date: 20200213
  Receipt Date: 20200213
  Transmission Date: 20200409
  Serious: Yes (Other)
  Sender: FDA-Public Use
  Company Number: DK-TEVA-2020-DK-1184495

PATIENT
  Age: 64 Year
  Sex: Male

DRUGS (5)
  1. PREDNISOLONE. [Suspect]
     Active Substance: PREDNISOLONE
     Dosage: DOSAGE: STARTING DOSE 80 MG, SLOWED DOWN SLOWLY
     Route: 048
     Dates: start: 201207, end: 201311
  2. PREDNISOLONE. [Suspect]
     Active Substance: PREDNISOLONE
     Dosage: DOSAGE: 15 MG DAILY, SUBSEQUENTLY REDUCED
     Route: 048
     Dates: start: 20161209
  3. MYFENAX [Concomitant]
     Active Substance: MYCOPHENOLATE MOFETIL
     Indication: IMMUNOSUPPRESSANT DRUG THERAPY
     Route: 048
     Dates: start: 201504
  4. CIQORIN [Concomitant]
     Active Substance: CYCLOSPORINE
     Indication: IMMUNOSUPPRESSANT DRUG THERAPY
     Dosage: DOSAGE: START DATE OF 300 MG DAILY. STEPPED DOWN CONTINUOUSLY
     Route: 048
     Dates: start: 201612
  5. PREDNISOLONE. [Suspect]
     Active Substance: PREDNISOLONE
     Indication: NEPHROTIC SYNDROME
     Dosage: DOSAGE: STARTING DOSE 80 MG DG. FOR 4 WEEKS.
     Route: 048
     Dates: start: 20141201, end: 20151109

REACTIONS (4)
  - Skin atrophy [Not Recovered/Not Resolved]
  - Ecchymosis [Unknown]
  - Insulin-requiring type 2 diabetes mellitus [Not Recovered/Not Resolved]
  - Sexual dysfunction [Not Recovered/Not Resolved]

NARRATIVE: CASE EVENT DATE: 2012
